FAERS Safety Report 6728150-5 (Version None)
Quarter: 2010Q2

REPORT INFORMATION
  Report Type: 
  Country: None (occurrence: None)
  Receive Date: 20100517
  Receipt Date: 20100506
  Transmission Date: 20101027
  Serious: Yes (Other)
  Sender: FDA-Public Use
  Company Number: A0846241A

PATIENT

DRUGS (1)
  1. ALTABAX [Suspect]
     Indication: IMPETIGO
     Route: 061

REACTIONS (3)
  - ANGIOEDEMA [None]
  - DERMATITIS CONTACT [None]
  - RASH [None]
